FAERS Safety Report 10921181 (Version 1)
Quarter: 2015Q1

REPORT INFORMATION
  Report Type: Spontaneous
  Country: CN (occurrence: CN)
  Receive Date: 20150317
  Receipt Date: 20150317
  Transmission Date: 20150721
  Serious: Yes (Other)
  Sender: FDA-Public Use
  Company Number: CN-ASTRAZENECA-2015SE24168

PATIENT
  Age: 837 Month
  Sex: Male
  Weight: 53 kg

DRUGS (3)
  1. SODIUM CHLORIDE. [Suspect]
     Active Substance: SODIUM CHLORIDE
     Indication: ABDOMINAL DISCOMFORT
     Route: 041
     Dates: start: 20140726
  2. ESOMEPRAZOLE SODIUM. [Suspect]
     Active Substance: ESOMEPRAZOLE SODIUM
     Indication: ABDOMINAL DISCOMFORT
     Route: 041
     Dates: start: 20140726, end: 20140727
  3. ESOMEPRAZOLE SODIUM. [Suspect]
     Active Substance: ESOMEPRAZOLE SODIUM
     Indication: GASTROINTESTINAL MUCOSAL DISORDER
     Route: 041
     Dates: start: 20140726, end: 20140727

REACTIONS (4)
  - Rash [Recovered/Resolved]
  - Pruritus [Recovered/Resolved]
  - Drug hypersensitivity [Unknown]
  - Arthropathy [Unknown]

NARRATIVE: CASE EVENT DATE: 201407
